FAERS Safety Report 8885215 (Version 5)
Quarter: 2013Q3

REPORT INFORMATION
  Report Type: Spontaneous
  Country: US (occurrence: US)
  Receive Date: 20121102
  Receipt Date: 20130822
  Transmission Date: 20140515
  Serious: Yes (Hospitalization)
  Sender: FDA-Public Use
  Company Number: US-GENZYME-FABR-1002810

PATIENT
  Age: 30 Year
  Sex: Female
  Weight: 60 kg

DRUGS (17)
  1. FABRAZYME [Suspect]
     Indication: FABRY^S DISEASE
     Dosage: 60 MG (1 MG/KG) , Q2W
     Route: 042
     Dates: start: 20110301
  2. FABRAZYME [Suspect]
     Dosage: 60 MG (1 MG/KG), Q2W
     Route: 042
     Dates: start: 200501, end: 20100413
  3. GABAPENTIN [Concomitant]
     Indication: NEURALGIA
     Dosage: 600 MG, TID, INCREASE 300 MG EVERY 3-4D TO 1800 MG
     Route: 048
  4. WELLBUTRIN [Concomitant]
     Indication: PRODUCT USED FOR UNKNOWN INDICATION
     Dosage: 300 MG, QD
     Route: 048
  5. SOMA [Concomitant]
     Indication: PRODUCT USED FOR UNKNOWN INDICATION
     Dosage: 250 MG, PRN
     Route: 048
  6. FENTANYL [Concomitant]
     Indication: PRODUCT USED FOR UNKNOWN INDICATION
     Dosage: 50 MCG, QDX3
     Route: 062
  7. FLONASE [Concomitant]
     Indication: PRODUCT USED FOR UNKNOWN INDICATION
     Dosage: 50 MCG, PRN
     Route: 045
  8. DEPO-PROVERA [Concomitant]
     Indication: PRODUCT USED FOR UNKNOWN INDICATION
     Dosage: UNK
     Route: 030
  9. OXYCONTIN [Concomitant]
     Indication: PAIN
     Dosage: 10 MG, Q12HR
     Route: 048
  10. OXYCODONE [Concomitant]
     Indication: PAIN
     Dosage: 5-325 MG Q6H
     Route: 048
  11. DELTASONE [Concomitant]
     Indication: THERAPEUTIC PROCEDURE
     Dosage: 10 MG, UNK
     Route: 048
  12. TIZANIDINE [Concomitant]
     Indication: PRODUCT USED FOR UNKNOWN INDICATION
     Dosage: 4 MG, UNK
     Route: 065
  13. TOPIRAMATE [Concomitant]
     Indication: PRODUCT USED FOR UNKNOWN INDICATION
     Dosage: 50 MG, TID
     Route: 048
  14. VENLAFAXINE [Concomitant]
     Indication: PRODUCT USED FOR UNKNOWN INDICATION
     Dosage: 300 MG, QD
     Route: 048
  15. ALBUTEROL [Concomitant]
     Indication: PRODUCT USED FOR UNKNOWN INDICATION
     Dosage: UNK
     Route: 065
  16. ALPRAZOLAM [Concomitant]
     Indication: ANXIETY
     Dosage: UNK
     Route: 048
  17. HEPARIN [Concomitant]
     Indication: CARDIAC ANEURYSM
     Dosage: UNK
     Route: 065
     Dates: start: 2012

REACTIONS (2)
  - Grand mal convulsion [Recovered/Resolved]
  - Atrial thrombosis [Not Recovered/Not Resolved]
